FAERS Safety Report 8876115 (Version 1)
Quarter: 2012Q4

REPORT INFORMATION
  Report Type: 
  Country: CH (occurrence: CH)
  Receive Date: 20121023
  Receipt Date: 20121023
  Transmission Date: 20130627
  Serious: Yes (Death, Hospitalization, Other)
  Sender: FDA-Public Use
  Company Number: CH-ABBOTT-12P-151-0998047-00

PATIENT
  Age: 84 Year
  Sex: Female

DRUGS (2)
  1. HUMIRA [Suspect]
     Indication: RHEUMATOID ARTHRITIS
     Route: 058
     Dates: start: 2011, end: 20120902
  2. METHOTREXATE [Interacting]
     Indication: RHEUMATOID ARTHRITIS
     Dates: end: 20120902

REACTIONS (13)
  - Asthenia [Fatal]
  - Adenocarcinoma gastric [Fatal]
  - Squamous cell carcinoma of the cervix [Fatal]
  - Abdominal pain [Not Recovered/Not Resolved]
  - Diarrhoea [Unknown]
  - Decreased appetite [Fatal]
  - Hypophagia [Fatal]
  - Metrorrhagia [Recovered/Resolved]
  - Mental disorder [Fatal]
  - Abdominal pain [Fatal]
  - Sopor [Fatal]
  - Asthenia [Fatal]
  - Coma [Fatal]
